FAERS Safety Report 5629814-7 (Version None)
Quarter: 2008Q1

REPORT INFORMATION
  Report Type: 
  Country: None (occurrence: None)
  Receive Date: 20080218
  Receipt Date: 20080208
  Transmission Date: 20080703
  Serious: Yes (Other)
  Sender: FDA-Public Use
  Company Number: PHNU2008DE00892

PATIENT
  Sex: Female
  Weight: 85 kg

DRUGS (5)
  1. AREDIA [Suspect]
     Indication: METASTASES TO BONE
     Dosage: 90 MG, QMO
     Route: 042
     Dates: start: 19990501, end: 20040201
  2. PAMIDRONATE DISODIUM [Suspect]
     Indication: METASTASES TO BONE
     Dosage: 60 MG, BIW
     Route: 042
     Dates: start: 20040301, end: 20050601
  3. PAMIFOS [Suspect]
     Indication: METASTASES TO BONE
     Dosage: 60 MG, BIW
     Route: 042
     Dates: start: 20050701, end: 20060201
  4. BONDRONAT [Suspect]
     Indication: METASTASES TO BONE
     Dosage: 6 MG, QMO
     Route: 042
     Dates: start: 20060301, end: 20061101
  5. RADIOTHERAPY [Concomitant]
     Route: 065
     Dates: start: 20010801, end: 20040201

REACTIONS (1)
  - OSTEONECROSIS [None]
